FAERS Safety Report 6646055-5 (Version None)
Quarter: 2010Q1

REPORT INFORMATION
  Report Type: 
  Country: None (occurrence: None)
  Receive Date: 20100323
  Receipt Date: 20100310
  Transmission Date: 20100710
  Serious: No
  Sender: FDA-Public Use
  Company Number: US-B.I. PHARMACEUTICALS,INC./RIDGEFIELD-2010-BP-01445BP

PATIENT
  Sex: Female

DRUGS (13)
  1. SPIRIVA [Suspect]
     Indication: CHRONIC OBSTRUCTIVE PULMONARY DISEASE
     Dosage: 18 MCG
     Route: 055
     Dates: start: 20060101
  2. BACLOFEN [Concomitant]
  3. BONIVA [Concomitant]
  4. HYDROCHLOROTHIAZIDE [Concomitant]
  5. LISINOPRIL [Concomitant]
  6. NUVIGIL [Concomitant]
  7. PRAVASTATIN [Concomitant]
  8. PROVENTIL [Concomitant]
  9. PROZAC [Concomitant]
  10. SINGULAIR [Concomitant]
  11. TRAZODONE HCL [Concomitant]
  12. TYSABRI [Concomitant]
  13. WELLBUTRIN XL [Concomitant]

REACTIONS (3)
  - COUGH [None]
  - DYSPNOEA [None]
  - INSOMNIA [None]
